FAERS Safety Report 8883466 (Version 1)
Quarter: 2012Q4

REPORT INFORMATION
  Report Type: 
  Country: US (occurrence: US)
  Receive Date: 20121102
  Receipt Date: 20121102
  Transmission Date: 20130627
  Serious: No
  Sender: FDA-Public Use
  Company Number: US-ASTRAZENECA-2012SE05350

PATIENT
  Age: 61 Year
  Sex: Female

DRUGS (2)
  1. CRESTOR [Suspect]
     Indication: BLOOD CHOLESTEROL INCREASED
     Route: 048
     Dates: start: 20111114, end: 20111227
  2. CRESTOR [Suspect]
     Indication: BLOOD CHOLESTEROL INCREASED
     Route: 048
     Dates: start: 20111227, end: 20120121

REACTIONS (11)
  - Migraine [Unknown]
  - Fibromyalgia [Unknown]
  - Diarrhoea [Unknown]
  - Arthritis [Unknown]
  - Myalgia [Unknown]
  - Abdominal pain [Unknown]
  - Nausea [Unknown]
  - Irritable bowel syndrome [Unknown]
  - Asthenia [Unknown]
  - Blood cholesterol increased [Unknown]
  - Drug ineffective [Unknown]
